FAERS Safety Report 11272893 (Version 1)
Quarter: 2015Q3

REPORT INFORMATION
  Report Type: Spontaneous
  Country: US (occurrence: None)
  Receive Date: 20150714
  Receipt Date: 20150714
  Transmission Date: 20151125
  Serious: Yes (Life-Threatening, Other)
  Sender: FDA-Public Use
  Company Number: None

PATIENT
  Age: 48 Year
  Sex: Female
  Weight: 74.39 kg

DRUGS (3)
  1. VALERIAN ROOT [Concomitant]
     Active Substance: VALERIAN
  2. THYROID MED [Concomitant]
  3. GENERIC LEVOTHYROXINE [Suspect]
     Active Substance: LEVOTHYROXINE
     Indication: THYROIDECTOMY
     Dosage: .188 (2 PILLS TOGETHER) ONCE DAILY TAKEN BY MOUTH
     Route: 048
     Dates: end: 20150710

REACTIONS (8)
  - Sleep disorder due to general medical condition, insomnia type [None]
  - Anxiety [None]
  - Disturbance in sexual arousal [None]
  - Trance [None]
  - Heart rate abnormal [None]
  - Product quality issue [None]
  - Chest pain [None]
  - Product tampering [None]

NARRATIVE: CASE EVENT DATE: 20150703
